FAERS Safety Report 19291136 (Version 1)
Quarter: 2021Q2

REPORT INFORMATION
  Report Type: Spontaneous
  Country: US (occurrence: US)
  Receive Date: 20210523
  Receipt Date: 20210523
  Transmission Date: 20210717
  Serious: Yes (Other)
  Sender: FDA-Public Use
  Company Number: US-TEVA-2021-US-1914074

PATIENT
  Sex: Female

DRUGS (4)
  1. GLUTEN [Concomitant]
     Active Substance: WHEAT GLUTEN
  2. AMOXICILLIN. [Concomitant]
     Active Substance: AMOXICILLIN
  3. GLATOPA [Concomitant]
     Active Substance: GLATIRAMER ACETATE
  4. COPAXONE [Suspect]
     Active Substance: GLATIRAMER ACETATE
     Indication: MULTIPLE SCLEROSIS
     Dosage: FORM STRENGTH AND DOSE: UNKNOWN
     Route: 065

REACTIONS (10)
  - Dyspnoea [Unknown]
  - Movement disorder [Unknown]
  - Feeling hot [Unknown]
  - Near death experience [Unknown]
  - Adverse drug reaction [Unknown]
  - Chills [Unknown]
  - Shock [Unknown]
  - Loss of consciousness [Unknown]
  - Anxiety [Unknown]
  - Muscle tightness [Unknown]
